FAERS Safety Report 12265516 (Version 1)
Quarter: 2016Q2

REPORT INFORMATION
  Report Type: Spontaneous
  Country: US (occurrence: US)
  Receive Date: 20160413
  Receipt Date: 20160413
  Transmission Date: 20160815
  Serious: No
  Sender: FDA-Public Use
  Company Number: US-GLAXOSMITHKLINE-US2016043687

PATIENT
  Age: 48 Year
  Sex: Male

DRUGS (4)
  1. ADVAIR DISKUS [Suspect]
     Active Substance: FLUTICASONE PROPIONATE\SALMETEROL XINAFOATE
     Indication: OCCUPATIONAL EXPOSURE TO TOXIC AGENT
     Dosage: 1 PUFF(S), BID
     Route: 055
     Dates: start: 20110915, end: 201207
  2. SINGULAIR [Concomitant]
     Active Substance: MONTELUKAST SODIUM
  3. LIDOCAINE. [Concomitant]
     Active Substance: LIDOCAINE
  4. PREDNISONE. [Concomitant]
     Active Substance: PREDNISONE

REACTIONS (4)
  - Oropharyngeal pain [Recovered/Resolved]
  - Drug effect incomplete [Recovered/Resolved]
  - Dysphonia [Recovered/Resolved]
  - Throat irritation [Recovered/Resolved]

NARRATIVE: CASE EVENT DATE: 20110915
